FAERS Safety Report 17495207 (Version 2)
Quarter: 2020Q1

REPORT INFORMATION
  Report Type: Spontaneous
  Country: DE (occurrence: DE)
  Receive Date: 20200304
  Receipt Date: 20200319
  Transmission Date: 20200409
  Serious: Yes (Other)
  Sender: FDA-Public Use
  Company Number: DE-PFIZER INC-2020090571

PATIENT
  Age: 30 Year
  Sex: Female
  Weight: 76 kg

DRUGS (1)
  1. CYTOTEC [Suspect]
     Active Substance: MISOPROSTOL
     Indication: LABOUR INDUCTION
     Dosage: UNK (1 TABLET EVERY 2 HOURS)
     Route: 048
     Dates: start: 20161105, end: 20161105

REACTIONS (5)
  - Uterine tachysystole [Recovered/Resolved]
  - Labour augmentation [Recovered/Resolved]
  - Product use in unapproved indication [Unknown]
  - Cardiac flutter [Recovered/Resolved]
  - Off label use [Unknown]

NARRATIVE: CASE EVENT DATE: 20161105
